FAERS Safety Report 25235800 (Version 2)
Quarter: 2025Q2

REPORT INFORMATION
  Report Type: Spontaneous
  Country: ES (occurrence: ES)
  Receive Date: 20250424
  Receipt Date: 20250430
  Transmission Date: 20250717
  Serious: Yes (Life-Threatening, Hospitalization, Other)
  Sender: PFIZER
  Company Number: ES-MLMSERVICE-20250411-PI476708-00255-1

PATIENT
  Age: 39 Year
  Sex: Female

DRUGS (8)
  1. PACLITAXEL [Suspect]
     Active Substance: PACLITAXEL
     Indication: Invasive ductal breast carcinoma
     Dosage: 80 MG/M2, WEEKLY
     Route: 042
     Dates: start: 20221112, end: 20221112
  2. PACLITAXEL [Suspect]
     Active Substance: PACLITAXEL
     Indication: HER2 positive breast cancer
  3. POLYOXYL 35 CASTOR OIL [Suspect]
     Active Substance: POLYOXYL 35 CASTOR OIL
     Indication: Invasive ductal breast carcinoma
     Route: 042
     Dates: start: 20221112, end: 20221112
  4. POLYOXYL 35 CASTOR OIL [Suspect]
     Active Substance: POLYOXYL 35 CASTOR OIL
     Indication: HER2 positive breast cancer
  5. PERTUZUMAB [Concomitant]
     Active Substance: PERTUZUMAB
     Indication: Invasive ductal breast carcinoma
     Dates: start: 20221112, end: 20221112
  6. PERTUZUMAB [Concomitant]
     Active Substance: PERTUZUMAB
     Indication: HER2 positive breast cancer
     Dates: start: 20221112, end: 20221112
  7. TRASTUZUMAB [Concomitant]
     Active Substance: TRASTUZUMAB
     Indication: Invasive ductal breast carcinoma
     Dates: start: 20221112, end: 20221112
  8. TRASTUZUMAB [Concomitant]
     Active Substance: TRASTUZUMAB
     Indication: HER2 positive breast cancer
     Dates: start: 20221112, end: 20221112

REACTIONS (4)
  - Kounis syndrome [Recovered/Resolved]
  - Anaphylactic shock [Recovered/Resolved]
  - Off label use [Unknown]
  - Off label use [Unknown]

NARRATIVE: CASE EVENT DATE: 20221112
